FAERS Safety Report 10797727 (Version 2)
Quarter: 2015Q1

REPORT INFORMATION
  Report Type: Spontaneous
  Country: US (occurrence: US)
  Receive Date: 20150216
  Receipt Date: 20150227
  Transmission Date: 20150721
  Serious: Yes (Hospitalization, Other)
  Sender: FDA-Public Use
  Company Number: US-PFIZER INC-2015049960

PATIENT
  Age: 74 Year
  Sex: Female

DRUGS (1)
  1. PREMARIN [Suspect]
     Active Substance: ESTROGENS, CONJUGATED
     Indication: VAGINAL PESSARY INSERTION
     Dosage: .05-4TH DAY
     Dates: start: 20111024

REACTIONS (3)
  - Urine abnormality [Not Recovered/Not Resolved]
  - Vaginal haemorrhage [Unknown]
  - Product use issue [Unknown]

NARRATIVE: CASE EVENT DATE: 201501
